FAERS Safety Report 4323334-8 (Version None)
Quarter: 2004Q1

REPORT INFORMATION
  Report Type: 
  Country: None (occurrence: None)
  Receive Date: 20040322
  Receipt Date: 20040304
  Transmission Date: 20041129
  Serious: Yes (Death, Hospitalization)
  Sender: FDA-Public Use
  Company Number: S04-GER-01074-01

PATIENT
  Age: 84 Year
  Sex: Female

DRUGS (9)
  1. CIPRAMIL (CITALOPRAM HYDROBROMIDE) [Suspect]
     Indication: DEPRESSION
     Dosage: 20 MG QD PO
     Route: 048
     Dates: start: 20031217, end: 20040103
  2. CIPRAMIL (CITALOPRAM HYDROBROMIDE) [Suspect]
     Indication: DEPRESSION
     Dosage: 10 MG QD PO
     Route: 048
     Dates: start: 20031212, end: 20031216
  3. DOXEPIN HCL [Suspect]
     Dosage: 100 MG QD
     Dates: start: 20031212, end: 20040103
  4. APONAL (DOXEPINE HYDROCHLORIDE) [Suspect]
     Indication: DEPRESSION
     Dosage: 150 MG QD
     Dates: start: 19940101, end: 20031211
  5. ASPIRIN [Concomitant]
  6. DETROL [Concomitant]
  7. CALCILAC (CALCIUM) [Concomitant]
  8. DISALUNIL (HYDROCHLOROTHIAZIDE) [Concomitant]
  9. BERODUAL [Concomitant]

REACTIONS (6)
  - CIRCULATORY COLLAPSE [None]
  - ELECTROCARDIOGRAM QT PROLONGED [None]
  - LOSS OF CONSCIOUSNESS [None]
  - MYOCARDIAL INFARCTION [None]
  - PULMONARY EMBOLISM [None]
  - SYNCOPE [None]
